FAERS Safety Report 7680760-7 (Version None)
Quarter: 2011Q3

REPORT INFORMATION
  Report Type: 
  Country: None (occurrence: None)
  Receive Date: 20110812
  Receipt Date: 20110803
  Transmission Date: 20111222
  Serious: Yes (Hospitalization, Other)
  Sender: FDA-Public Use
  Company Number: US-BAYER-2010-002449

PATIENT
  Age: 24 Year
  Sex: Female

DRUGS (8)
  1. ZITHROMAX [Concomitant]
     Dosage: UNK
     Dates: start: 20051201
  2. ROCEPHIN [Concomitant]
     Dosage: UNK
     Dates: start: 20051217, end: 20051221
  3. KEFLEX [Concomitant]
     Dosage: UNK
     Dates: start: 20051217
  4. SYNTHROID [Concomitant]
     Dosage: 0.075-0.088 MG DAILY
     Route: 048
     Dates: start: 20030101
  5. AUGMENTIN '125' [Concomitant]
     Dosage: UNK
     Dates: start: 20051219
  6. YASMIN [Suspect]
     Dosage: UNK
     Dates: start: 20030301, end: 20071101
  7. CYTOMEL [Concomitant]
     Dosage: 5 MCG/24HR, QD
     Route: 048
     Dates: start: 20030101
  8. EFFEXOR [Concomitant]
     Indication: DEPRESSION
     Dosage: 37.5 MG, QD
     Route: 048
     Dates: start: 20050124, end: 20051101

REACTIONS (3)
  - CHOLECYSTITIS ACUTE [None]
  - CHOLECYSTITIS INFECTIVE [None]
  - URINARY TRACT INFECTION ENTEROCOCCAL [None]
